FAERS Safety Report 12335435 (Version 4)
Quarter: 2016Q2

REPORT INFORMATION
  Report Type: Spontaneous
  Country: AT (occurrence: AT)
  Receive Date: 20160504
  Receipt Date: 20160606
  Transmission Date: 20160815
  Serious: Yes (Hospitalization, Other)
  Sender: FDA-Public Use
  Company Number: AT-AMGEN-AUTSP2016055285

PATIENT
  Age: 66 Year
  Sex: Female
  Weight: 70 kg

DRUGS (5)
  1. SIMVASTATIN. [Concomitant]
     Active Substance: SIMVASTATIN
     Indication: HYPERTRIGLYCERIDAEMIA
     Dosage: 40 MG
     Route: 048
  2. THROMBO ASS [Concomitant]
     Active Substance: ASPIRIN
     Dosage: 100 MG
     Route: 048
  3. VALACYCLOVIR [Concomitant]
     Active Substance: VALACYCLOVIR HYDROCHLORIDE
     Indication: PROPHYLAXIS
     Dosage: 500 MG
     Route: 048
  4. KYPROLIS [Suspect]
     Active Substance: CARFILZOMIB
     Indication: PRODUCT USED FOR UNKNOWN INDICATION
     Dosage: 58 MG/M2, DAY 1,2,8,9,15,16
     Route: 042
     Dates: start: 20160303
  5. TAMOXIFEN [Concomitant]
     Active Substance: TAMOXIFEN
     Dosage: UNK
     Dates: start: 2013

REACTIONS (5)
  - Hypertriglyceridaemia [Not Recovered/Not Resolved]
  - Sepsis [Not Recovered/Not Resolved]
  - Multiple organ dysfunction syndrome [Unknown]
  - Pancreatitis [Not Recovered/Not Resolved]
  - Renal failure [Not Recovered/Not Resolved]

NARRATIVE: CASE EVENT DATE: 20160425
